FAERS Safety Report 5742224-7 (Version None)
Quarter: 2008Q2

REPORT INFORMATION
  Report Type: 
  Country: None (occurrence: None)
  Receive Date: 20080519
  Receipt Date: 20080506
  Transmission Date: 20081010
  Serious: Yes (Other)
  Sender: FDA-Public Use
  Company Number: DE-BAUSCH-2008BL002028

PATIENT
  Age: 58 Year
  Sex: Female

DRUGS (5)
  1. TIM-OPHTAL 0.5% SINE AUGENTROPFEN [Suspect]
     Indication: GLAUCOMA
     Route: 047
     Dates: start: 20040401
  2. XALATAN /SWE/ [Concomitant]
     Indication: GLAUCOMA
     Route: 047
  3. OCUVITE LUTEIN AMD [Concomitant]
     Indication: MACULAR DEGENERATION
     Route: 048
     Dates: start: 20060101
  4. THILO-TEARS [Concomitant]
     Indication: DRUG USE FOR UNKNOWN INDICATION
     Route: 047
  5. COSOPT [Concomitant]
     Indication: GLAUCOMA
     Route: 047

REACTIONS (2)
  - ADIPOSIS DOLOROSA [None]
  - LYMPHOEDEMA [None]
